FAERS Safety Report 22683680 (Version 5)
Quarter: 2023Q4

REPORT INFORMATION
  Report Type: Report from Study
  Country: US (occurrence: US)
  Receive Date: 20230708
  Receipt Date: 20231016
  Transmission Date: 20240109
  Serious: No
  Sender: FDA-Public Use
  Company Number: US-002147023-NVSC2023US152728

PATIENT
  Sex: Male

DRUGS (1)
  1. KISQALI [Suspect]
     Active Substance: RIBOCICLIB
     Indication: Product used for unknown indication
     Dosage: UNK
     Route: 065

REACTIONS (8)
  - Weight increased [Unknown]
  - Pain [Unknown]
  - Asthenia [Unknown]
  - Rash [Unknown]
  - Pollakiuria [Unknown]
  - Back pain [Unknown]
  - Constipation [Unknown]
  - Herpes zoster [Unknown]
